FAERS Safety Report 24700496 (Version 1)
Quarter: 2024Q4

REPORT INFORMATION
  Report Type: Spontaneous
  Country: FI (occurrence: FI)
  Receive Date: 20241205
  Receipt Date: 20241205
  Transmission Date: 20250114
  Serious: Yes (Death, Other)
  Sender: AMGEN
  Company Number: FI-AMGEN-FINSP2024236582

PATIENT

DRUGS (1)
  1. CINACALCET HYDROCHLORIDE [Suspect]
     Active Substance: CINACALCET HYDROCHLORIDE
     Indication: Chronic kidney disease
     Dosage: UNK
     Route: 065

REACTIONS (7)
  - Death [Fatal]
  - Multiple fractures [Unknown]
  - Osteoporosis [Unknown]
  - Osteopenia [Unknown]
  - Fall [Unknown]
  - Road traffic accident [Unknown]
  - Adverse event [Unknown]
